FAERS Safety Report 13032884 (Version 2)
Quarter: 2017Q3

REPORT INFORMATION
  Report Type: Other
  Country: IT (occurrence: IT)
  Receive Date: 20161215
  Receipt Date: 20170713
  Transmission Date: 20171127
  Serious: Yes (Other)
  Sender: FDA-Public Use
  Company Number: IT-ALSI-201600371

PATIENT
  Age: 52 Year
  Sex: Female

DRUGS (1)
  1. OXYGEN. [Suspect]
     Active Substance: OXYGEN
     Indication: CARBON MONOXIDE POISONING
     Route: 055

REACTIONS (2)
  - Generalised tonic-clonic seizure [None]
  - Status epilepticus [None]
